FAERS Safety Report 16398416 (Version 1)
Quarter: 2019Q2

REPORT INFORMATION
  Report Type: Spontaneous
  Country: US (occurrence: US)
  Receive Date: 20190605
  Receipt Date: 20190605
  Transmission Date: 20190711
  Serious: Yes (Hospitalization)
  Sender: FDA-Public Use
  Company Number: None

PATIENT
  Age: 63 Year
  Sex: Male

DRUGS (11)
  1. OXYCODONE TABLET 15MG [Concomitant]
     Dates: start: 20190521, end: 20190529
  2. CELECOXIB CAPSULE 200MG [Concomitant]
     Dates: start: 20190514
  3. LEFLUNOMIDE TABLET 10MG [Concomitant]
     Dates: start: 20190523
  4. METHYLPREDNISOLONE TABLET 4MG [Concomitant]
     Dates: start: 20190521
  5. TRAZODONE TABLET 100MG [Concomitant]
     Dates: start: 20190405
  6. OXYCODONE/APAP TAB 10-325MG [Concomitant]
     Dates: start: 20190529
  7. AMPHETAMINE/DEXTRAMPHETAMINE TAB 30MG [Concomitant]
     Dates: start: 20190529
  8. HUMIRA [Suspect]
     Active Substance: ADALIMUMAB
     Indication: RHEUMATOID ARTHRITIS
     Dosage: ?          OTHER FREQUENCY:TWICE A MONTH;?
     Route: 058
     Dates: start: 20150812
  9. INCRUSE ELPT INH 62.5MCG [Concomitant]
     Dates: start: 20190411, end: 20190511
  10. SYMBICORT AER 160-4.5 [Concomitant]
     Dates: start: 20190411, end: 20190511
  11. AMITRIPTYLINE TABLET 10MG [Concomitant]
     Dates: start: 20190515

REACTIONS (2)
  - Knee operation [None]
  - Joint effusion [None]

NARRATIVE: CASE EVENT DATE: 20190604
